FAERS Safety Report 9800266 (Version 1)
Quarter: 2014Q1

REPORT INFORMATION
  Report Type: Spontaneous
  Country: ES (occurrence: ES)
  Receive Date: 20140106
  Receipt Date: 20140106
  Transmission Date: 20141002
  Serious: Yes (Hospitalization)
  Sender: FDA-Public Use
  Company Number: ES-GILEAD-2014-0091087

PATIENT
  Age: 39 Year
  Sex: Female

DRUGS (4)
  1. TRUVADA [Suspect]
     Indication: HIV INFECTION
     Dosage: UNK
     Route: 048
     Dates: start: 20131219, end: 20131221
  2. KALETRA [Concomitant]
     Indication: HIV INFECTION
     Route: 048
  3. EFAVIRENZ [Concomitant]
     Indication: HIV INFECTION
  4. EFAVIRENZ [Concomitant]
     Indication: STEVENS-JOHNSON SYNDROME

REACTIONS (1)
  - Peripheral sensory neuropathy [Recovered/Resolved]
